FAERS Safety Report 17578423 (Version 2)
Quarter: 2020Q2

REPORT INFORMATION
  Report Type: Spontaneous
  Country: CZ (occurrence: CZ)
  Receive Date: 20200324
  Receipt Date: 20200511
  Transmission Date: 20200713
  Serious: Yes (Hospitalization, Disabling, Other)
  Sender: FDA-Public Use
  Company Number: CZ-MYLANLABS-2020M1030009

PATIENT
  Age: 71 Year
  Sex: Female
  Weight: 96 kg

DRUGS (5)
  1. PRENESSA [Concomitant]
     Active Substance: PERINDOPRIL
     Indication: HYPERTENSION
     Dosage: 1-0-0
     Route: 048
  2. LORADUR [Concomitant]
     Indication: HYPERTENSION
     Dosage: 1-0-0
     Route: 048
  3. ANASTROZOL MYLAN 1 MG, FILMOMHULDE TABLETTEN [Suspect]
     Active Substance: ANASTROZOLE
     Indication: BREAST CANCER
     Dosage: ONCE DAILY, ADMINISTRATION DISCONTINUED BECAUSE OF FRACTURE
     Route: 048
     Dates: start: 201702, end: 201902
  4. ANASTROZOL MYLAN 1 MG, FILMOMHULDE TABLETTEN [Suspect]
     Active Substance: ANASTROZOLE
     Dosage: AGAIN DISCONTINUED BECAUSE OF FRACTURE AND THEN WITHDRAWAL
     Route: 048
     Dates: start: 201908, end: 201911
  5. LETROX [Concomitant]
     Active Substance: LEVOTHYROXINE SODIUM
     Indication: THYROIDECTOMY
     Dosage: MONDAY TO THURSDAY 150 MCG, FRIDAY TO SUNDAY 75 MCG 1-0-0
     Route: 048

REACTIONS (3)
  - Pathological fracture [Unknown]
  - Condition aggravated [Unknown]
  - Osteoporosis [Unknown]

NARRATIVE: CASE EVENT DATE: 20190204
